FAERS Safety Report 7300724-2 (Version None)
Quarter: 2011Q1

REPORT INFORMATION
  Report Type: 
  Country: None (occurrence: None)
  Receive Date: 20110105
  Receipt Date: 20091230
  Transmission Date: 20110831
  Serious: Yes (Other)
  Sender: FDA-Public Use
  Company Number: 294295

PATIENT
  Age: 60 Year
  Sex: Female
  Weight: 70 kg

DRUGS (3)
  1. PROPOFOL [Concomitant]
  2. INSULIN (INSULIN) [Concomitant]
  3. ACTIVACIN (ALTEPLASE) POWDER AND SOLVENT FOR SOLUTION FOR INFUSION [Suspect]
     Indication: THROMBOTIC STROKE
     Dosage: 63 MG, X1, INTRAVENOUS
     Route: 042
     Dates: start: 20091111

REACTIONS (1)
  - HAEMORRHAGE INTRACRANIAL [None]
